FAERS Safety Report 9300946 (Version 1)
Quarter: 2013Q2

REPORT INFORMATION
  Report Type: Report from Study
  Country: US (occurrence: US)
  Receive Date: 20130521
  Receipt Date: 20130521
  Transmission Date: 20140414
  Serious: Yes (Hospitalization)
  Sender: FDA-Public Use
  Company Number: US-PFIZER INC-2013152468

PATIENT
  Age: 20 Year
  Sex: Male

DRUGS (4)
  1. GABAPENTIN [Suspect]
     Indication: DRUG ABUSE
     Dosage: UNK
  2. OXYCODONE HYDROCHLORIDE [Suspect]
     Indication: DRUG ABUSE
     Dosage: UNK
  3. ALCOHOL [Suspect]
     Indication: DRUG ABUSE
     Dosage: UNK
  4. COCAINE [Suspect]
     Indication: DRUG ABUSE
     Dosage: UNK

REACTIONS (6)
  - Drug abuse [Unknown]
  - Somnolence [Unknown]
  - Coma [Unknown]
  - Hypotension [Unknown]
  - Myoclonus [Unknown]
  - Hyperreflexia [Unknown]
